FAERS Safety Report 5943980-5 (Version None)
Quarter: 2008Q4

REPORT INFORMATION
  Report Type: 
  Country: None (occurrence: None)
  Receive Date: 20081106
  Receipt Date: 20081027
  Transmission Date: 20090506
  Serious: Yes (Hospitalization)
  Sender: FDA-Public Use
  Company Number: GR-ABBOTT-08P-066-0484688-00

PATIENT
  Age: 76 Year
  Sex: Female
  Weight: 67 kg

DRUGS (10)
  1. ZEMPLAR [Suspect]
     Indication: HYPERPARATHYROIDISM SECONDARY
     Route: 042
     Dates: start: 20070414, end: 20070910
  2. CLOPIDOGREL [Concomitant]
     Indication: CORONARY ARTERY DISEASE
     Route: 048
     Dates: start: 20061201
  3. SEROQUCI TABS [Concomitant]
     Indication: DEPRESSION
     Route: 048
     Dates: start: 20051201
  4. ALPRAZOLAM [Concomitant]
     Indication: DEPRESSION
     Route: 048
     Dates: start: 20070406
  5. SOTALOL HCL [Concomitant]
     Indication: CORONARY ARTERY DISEASE
     Route: 048
     Dates: start: 20070301
  6. PAROXETINE HCL [Concomitant]
     Indication: DEPRESSION
     Route: 048
     Dates: start: 20070301
  7. SEVELAMER [Concomitant]
     Indication: HYPERPHOSPHATAEMIA
     Route: 048
     Dates: start: 20080706
  8. PANTOPRAZOLE SODIUM [Concomitant]
     Indication: ABDOMINAL PAIN UPPER
     Route: 048
     Dates: start: 20080802
  9. MIRCERAA [Concomitant]
     Indication: ANAEMIA
     Route: 058
     Dates: start: 20080802
  10. MIRCERAA [Concomitant]
     Indication: RENAL FAILURE CHRONIC

REACTIONS (6)
  - CARDIOTHORACIC RATIO INCREASED [None]
  - CITROBACTER INFECTION [None]
  - DIAPHRAGMATIC DISORDER [None]
  - PLEURAL EFFUSION [None]
  - POOR VENOUS ACCESS [None]
  - TREATMENT FAILURE [None]
